FAERS Safety Report 4785496-8 (Version None)
Quarter: 2005Q4

REPORT INFORMATION
  Report Type: 
  Country: None (occurrence: None)
  Receive Date: 20051003
  Receipt Date: 20050912
  Transmission Date: 20060501
  Serious: Yes (Hospitalization)
  Sender: FDA-Public Use
  Company Number: BE-JNJFOC-20050903437

PATIENT
  Age: 4 Year
  Sex: Male

DRUGS (5)
  1. INFLIXIMAB [Suspect]
     Route: 042
  2. INFLIXIMAB [Suspect]
     Indication: CROHN'S DISEASE
     Route: 042
  3. IMURAN [Concomitant]
     Indication: CROHN'S DISEASE
     Route: 042
     Dates: start: 20040413
  4. FERRICURE [Concomitant]
     Route: 065
     Dates: start: 20050207
  5. MULTIVITAMIN [Concomitant]
     Route: 065
     Dates: start: 20050207

REACTIONS (7)
  - ANOREXIA [None]
  - COUGH [None]
  - ERYTHEMA [None]
  - FEELING ABNORMAL [None]
  - HAEMATOCHEZIA [None]
  - INFUSION RELATED REACTION [None]
  - PYREXIA [None]
